FAERS Safety Report 5387459-0 (Version None)
Quarter: 2007Q3

REPORT INFORMATION
  Report Type: 
  Country: None (occurrence: None)
  Receive Date: 20070716
  Receipt Date: 20070702
  Transmission Date: 20080115
  Serious: Yes (Hospitalization)
  Sender: FDA-Public Use
  Company Number: JP-ELI_LILLY_AND_COMPANY-JP200703002754

PATIENT
  Age: 51 Year
  Sex: Female
  Weight: 81.25 kg

DRUGS (2)
  1. ZYPREXA [Suspect]
     Indication: SCHIZOPHRENIA
     Dosage: UNK, UNK
     Route: 048
     Dates: start: 20040902
  2. ZYPREXA [Suspect]
     Dosage: 20 MG, DAILY (1/D)
     Route: 048
     Dates: end: 20061106

REACTIONS (4)
  - DECREASED ACTIVITY [None]
  - INCREASED APPETITE [None]
  - METABOLIC SYNDROME [None]
  - WEIGHT INCREASED [None]
